FAERS Safety Report 9447653 (Version 1)
Quarter: 2013Q3

REPORT INFORMATION
  Report Type: Spontaneous
  Country: GB (occurrence: None)
  Receive Date: 20130805
  Receipt Date: 20130805
  Transmission Date: 20140515
  Serious: Yes (Hospitalization)
  Sender: FDA-Public Use
  Company Number: 2013P1013753

PATIENT
  Age: 71 Year
  Sex: Male
  Weight: 92 kg

DRUGS (15)
  1. DIGOXIN [Suspect]
     Indication: ATRIAL FIBRILLATION
     Route: 048
  2. DROMEDARONE [Suspect]
     Indication: ATRIAL FIBRILLATION
     Route: 048
  3. SOTALOL [Suspect]
     Indication: ATRIAL FIBRILLATION
     Route: 048
  4. ATORVASTATIN [Suspect]
     Route: 048
  5. WARFARIN [Suspect]
     Route: 048
  6. BISOPROLOL [Suspect]
     Route: 048
  7. ALLOPURINOL [Concomitant]
  8. FINASTERIDE [Concomitant]
  9. METFORMIN [Concomitant]
  10. GAVISCON ADVANCE [Concomitant]
  11. OMACOR [Concomitant]
  12. CANDESARTAN [Concomitant]
  13. DOXAZOSIN [Concomitant]
  14. SPIRONOLACTONE [Concomitant]
  15. SANDO-K [Concomitant]

REACTIONS (13)
  - International normalised ratio increased [None]
  - Diarrhoea [None]
  - Oliguria [None]
  - Dizziness [None]
  - Nausea [None]
  - Abdominal pain [None]
  - Sinus bradycardia [None]
  - Weight increased [None]
  - Renal failure acute [None]
  - Dehydration [None]
  - Hypotension [None]
  - Nephropathy toxic [None]
  - Tubulointerstitial nephritis [None]
